FAERS Safety Report 11521701 (Version 1)
Quarter: 2015Q3

REPORT INFORMATION
  Report Type: Spontaneous
  Country: US (occurrence: US)
  Receive Date: 20150918
  Receipt Date: 20150918
  Transmission Date: 20151125
  Serious: Yes (Hospitalization, Other)
  Sender: FDA-Public Use
  Company Number: US-ROCHE-524106

PATIENT
  Age: 51 Year
  Sex: Female

DRUGS (2)
  1. PEGASYS [Suspect]
     Active Substance: PEGINTERFERON ALFA-2A
     Indication: HEPATITIS C
     Route: 065
  2. COPEGUS [Suspect]
     Active Substance: RIBAVIRIN
     Indication: HEPATITIS C
     Route: 065

REACTIONS (13)
  - Drug ineffective [Unknown]
  - Speech disorder [Unknown]
  - Pyrexia [Unknown]
  - Lung disorder [Unknown]
  - Memory impairment [Unknown]
  - Fatigue [Unknown]
  - Cough [Unknown]
  - Psoriasis [Unknown]
  - Pneumonia [Unknown]
  - Immune system disorder [Not Recovered/Not Resolved]
  - Anger [Unknown]
  - Thyroid disorder [Not Recovered/Not Resolved]
  - Mental disorder [Not Recovered/Not Resolved]

NARRATIVE: CASE EVENT DATE: 2008
